FAERS Safety Report 5189475-0 (Version None)
Quarter: 2006Q4

REPORT INFORMATION
  Report Type: 
  Country: None (occurrence: None)
  Receive Date: 20061215
  Receipt Date: 20061204
  Transmission Date: 20070319
  Serious: Yes (Hospitalization)
  Sender: FDA-Public Use
  Company Number: MEDI-0004314

PATIENT
  Age: 2 Month
  Weight: 3.6 kg

DRUGS (2)
  1. SYNAGIS [Suspect]
     Indication: ANTIVIRAL PROPHYLAXIS
     Dosage: 1 IN 30 D INTRAMUSCULAR
     Route: 030
     Dates: start: 20060222, end: 20060222
  2. SYNAGIS [Suspect]
     Indication: ANTIVIRAL PROPHYLAXIS
     Dosage: 1 IN 30 D INTRAMUSCULAR
     Route: 030
     Dates: start: 20060320

REACTIONS (1)
  - GASTROENTERITIS ROTAVIRUS [None]
